FAERS Safety Report 14096655 (Version 1)
Quarter: 2017Q4

REPORT INFORMATION
  Report Type: Spontaneous
  Country: CA (occurrence: CA)
  Receive Date: 20171017
  Receipt Date: 20171017
  Transmission Date: 20180321
  Serious: Yes (Other)
  Sender: FDA-Public Use
  Company Number: CA-CONCORDIA PHARMACEUTICALS INC.-GSH201710-005791

PATIENT
  Sex: Female

DRUGS (14)
  1. METHOTREXATE. [Concomitant]
     Active Substance: METHOTREXATE
     Dates: start: 20160809
  2. SODIUM AUROTHIOMALATE [Suspect]
     Active Substance: GOLD SODIUM THIOMALATE
     Indication: PRODUCT USED FOR UNKNOWN INDICATION
     Route: 051
  3. PREDNISONE. [Concomitant]
     Active Substance: PREDNISONE
     Dates: start: 200807
  4. TYLENOL WITH CODEINE [Concomitant]
     Active Substance: ACETAMINOPHEN\CODEINE PHOSPHATE
     Dates: start: 20161018
  5. SALAZOPYRIN [Concomitant]
     Active Substance: SULFASALAZINE
     Dates: start: 20161018
  6. ORENCIA [Concomitant]
     Active Substance: ABATACEPT
     Dates: start: 20161018, end: 20170803
  7. FOLIC ACID. [Concomitant]
     Active Substance: FOLIC ACID
     Dates: start: 20160809
  8. XELJANZ [Concomitant]
     Active Substance: TOFACITINIB CITRATE
     Dates: start: 20170928
  9. CAFFEINE/CODEINE/PARACETAMOL [Concomitant]
     Dates: start: 20160809
  10. PLAQUENIL [Suspect]
     Active Substance: HYDROXYCHLOROQUINE SULFATE
     Indication: PRODUCT USED FOR UNKNOWN INDICATION
     Route: 048
  11. SULFASALAZINE. [Concomitant]
     Active Substance: SULFASALAZINE
     Dates: start: 20000816
  12. APO-PREDNISONE [Concomitant]
     Active Substance: PREDNISONE
     Dates: start: 20170302
  13. APO-AMOXI CLAV [Concomitant]
     Active Substance: AMOXICILLIN\CLAVULANATE POTASSIUM
     Dates: start: 20170303
  14. NASONEX [Concomitant]
     Active Substance: MOMETASONE FUROATE
     Dates: start: 20170831

REACTIONS (2)
  - Retinopathy [Unknown]
  - Liver disorder [Unknown]
